FAERS Safety Report 20414418 (Version 2)
Quarter: 2022Q1

REPORT INFORMATION
  Report Type: Spontaneous
  Country: US (occurrence: US)
  Receive Date: 20220202
  Receipt Date: 20220222
  Transmission Date: 20220423
  Serious: Yes (Death)
  Sender: FDA-Public Use
  Company Number: ENDG22-00122

PATIENT
  Age: 59 Year
  Sex: Female

DRUGS (1)
  1. BOSENTAN [Suspect]
     Active Substance: BOSENTAN
     Indication: Pulmonary arterial hypertension
     Dosage: 62.5 MG, BID
     Route: 048
     Dates: start: 202112

REACTIONS (8)
  - Disease progression [Fatal]
  - Acute right ventricular failure [Fatal]
  - Cardiac arrest [Fatal]
  - Chronic right ventricular failure [Fatal]
  - Respiratory failure [Fatal]
  - Mixed connective tissue disease [Fatal]
  - Interstitial lung disease [Fatal]
  - Pulmonary hypertension [Fatal]

NARRATIVE: CASE EVENT DATE: 20220112
